FAERS Safety Report 21139964 (Version 1)
Quarter: 2022Q3

REPORT INFORMATION
  Report Type: Spontaneous
  Country: FR (occurrence: FR)
  Receive Date: 20220728
  Receipt Date: 20220728
  Transmission Date: 20221027
  Serious: Yes (Life-Threatening)
  Sender: FDA-Public Use
  Company Number: None

PATIENT
  Age: 92 Year
  Sex: Male

DRUGS (2)
  1. PREDNISONE [Interacting]
     Active Substance: PREDNISONE
     Indication: Hepatitis
     Dosage: 7.5MG, FREQUENCY TIME 1DAYS
     Route: 065
     Dates: start: 202202
  2. AZATHIOPRINE [Interacting]
     Active Substance: AZATHIOPRINE
     Indication: Hepatitis
     Dosage: 50MG, FREQUENCY TIME 1DAYS, DURATION 3MONTHS
     Route: 065
     Dates: start: 202203, end: 20220624

REACTIONS (2)
  - Respiratory distress [Recovered/Resolved]
  - Drug interaction [Recovered/Resolved]

NARRATIVE: CASE EVENT DATE: 20220624
